FAERS Safety Report 5415416-4 (Version None)
Quarter: 2007Q3

REPORT INFORMATION
  Report Type: 
  Country: None (occurrence: None)
  Receive Date: 20070813
  Receipt Date: 20070813
  Transmission Date: 20080115
  Serious: No
  Sender: FDA-Public Use
  Company Number: None

PATIENT
  Age: 82 Year
  Sex: Male

DRUGS (1)
  1. FOSINOPRIL SODIUM [Suspect]
     Dosage: 20MG EVERY DAY PO
     Route: 048
     Dates: start: 20031205, end: 20031215

REACTIONS (2)
  - COUGH [None]
  - WHEEZING [None]
